FAERS Safety Report 10128508 (Version 2)
Quarter: 2014Q2

REPORT INFORMATION
  Report Type: Report from Study
  Country: US (occurrence: US)
  Receive Date: 20140428
  Receipt Date: 20140511
  Transmission Date: 20141212
  Serious: Yes (Hospitalization)
  Sender: FDA-Public Use
  Company Number: US-MERCK-1404USA012456

PATIENT
  Age: 65 Year
  Sex: Female
  Weight: 58.1 kg

DRUGS (12)
  1. ZOLINZA [Suspect]
     Indication: T-CELL LYMPHOMA
     Dosage: 400 MG, QD, CYCLE:1
     Route: 048
     Dates: start: 20140320, end: 20140412
  2. CLOBETASOL PROPIONATE [Concomitant]
     Dosage: OINTMENT, CREAM, UNKNOWN
  3. DOXEPIN HYDROCHLORIDE [Concomitant]
     Dosage: UNK
  4. DIMETHICONE [Concomitant]
     Dosage: UNK
  5. ESTRADIOL [Concomitant]
     Dosage: UNK
  6. FLUOCINOLONE ACETONIDE [Concomitant]
     Dosage: UNK
  7. PREDNISONE [Concomitant]
     Dosage: UNK
  8. PROGESTERONE [Concomitant]
     Dosage: UNK
  9. VALACYCLOVIR HYDROCHLORIDE [Concomitant]
     Dosage: UNK
  10. ZOLPIDEM TARTRATE [Concomitant]
     Dosage: UNK
  11. HALOBETASOL PROPIONATE [Concomitant]
     Dosage: UNK
  12. HYDROXYZINE PAMOATE [Concomitant]
     Dosage: UNK

REACTIONS (2)
  - Metabolic acidosis [Recovered/Resolved]
  - Sepsis syndrome [Recovered/Resolved]
